FAERS Safety Report 10269996 (Version 1)
Quarter: 2014Q2

REPORT INFORMATION
  Report Type: Spontaneous
  Country: US (occurrence: None)
  Receive Date: 20140626
  Receipt Date: 20140626
  Transmission Date: 20141212
  Serious: Yes (Other)
  Sender: FDA-Public Use
  Company Number: None

PATIENT
  Sex: Male
  Weight: 72.58 kg

DRUGS (3)
  1. DULERA [Suspect]
     Indication: ASTHMA
     Dosage: 100 MCG/5 MCG?2 PUFFS=2TIMES DAY ?MOUTH
     Route: 048
     Dates: start: 201001
  2. NEBULIZER [Concomitant]
  3. VICATIN [Concomitant]

REACTIONS (1)
  - Tooth loss [None]
